FAERS Safety Report 9241811 (Version 1)
Quarter: 2013Q2

REPORT INFORMATION
  Report Type: Spontaneous
  Country: JP (occurrence: JP)
  Receive Date: 20130419
  Receipt Date: 20130419
  Transmission Date: 20140414
  Serious: Yes (Other)
  Sender: FDA-Public Use
  Company Number: JP-RANBAXY-2013R1-67609

PATIENT
  Age: 50 Year
  Sex: Female

DRUGS (2)
  1. HYDROCORTISONE [Suspect]
     Indication: HYPOPITUITARISM
     Route: 065
  2. EXENATIDE [Interacting]
     Indication: DIABETES MELLITUS INADEQUATE CONTROL
     Dosage: 10 ?G, BID
     Route: 065

REACTIONS (2)
  - Drug interaction [Unknown]
  - Adrenal insufficiency [Recovered/Resolved]
